FAERS Safety Report 13947813 (Version 2)
Quarter: 2017Q4

REPORT INFORMATION
  Report Type: Spontaneous
  Country: PL (occurrence: PL)
  Receive Date: 20170908
  Receipt Date: 20171117
  Transmission Date: 20180320
  Serious: Yes (Hospitalization, Other)
  Sender: FDA-Public Use
  Company Number: PL-VISTAPHARM, INC.-VER201708-000474

PATIENT
  Age: 33 Year
  Sex: Male

DRUGS (5)
  1. METOCLOPRAMIDE. [Suspect]
     Active Substance: METOCLOPRAMIDE
     Indication: GASTROINTESTINAL DISORDER
     Route: 051
  2. TACROLIMUS. [Concomitant]
     Active Substance: TACROLIMUS
     Indication: IMMUNOSUPPRESSANT DRUG THERAPY
  3. MYCOPHENOLATE MOFETIL. [Concomitant]
     Active Substance: MYCOPHENOLATE MOFETIL
     Indication: IMMUNOSUPPRESSANT DRUG THERAPY
  4. THEOPHYLLINE [Suspect]
     Active Substance: THEOPHYLLINE ANHYDROUS
     Indication: POST PROCEDURAL COMPLICATION
  5. THEOPHYLLINE [Suspect]
     Active Substance: THEOPHYLLINE ANHYDROUS
     Indication: BRADYCARDIA

REACTIONS (2)
  - Generalised tonic-clonic seizure [Unknown]
  - Drug interaction [Unknown]
